FAERS Safety Report 6440987-9 (Version None)
Quarter: 2009Q4

REPORT INFORMATION
  Report Type: 
  Country: None (occurrence: None)
  Receive Date: 20091116
  Receipt Date: 20091104
  Transmission Date: 20100525
  Serious: Yes (Other)
  Sender: FDA-Public Use
  Company Number: US-BAYER-200938508NA

PATIENT
  Age: 18 Year
  Sex: Female

DRUGS (2)
  1. YAZ [Suspect]
     Indication: DRUG USE FOR UNKNOWN INDICATION
     Dates: start: 20071115
  2. PROVERA [Suspect]
     Indication: OVULATION DISORDER
     Dosage: 10MG FOR 6 DOSES/DAYS

REACTIONS (1)
  - CEREBROVASCULAR ACCIDENT [None]
